FAERS Safety Report 6423685-7 (Version None)
Quarter: 2009Q4

REPORT INFORMATION
  Report Type: 
  Country: None (occurrence: None)
  Receive Date: 20091102
  Receipt Date: 20091020
  Transmission Date: 20100525
  Serious: Yes (Death, Other)
  Sender: FDA-Public Use
  Company Number: SE-PFIZER INC-2009285556

PATIENT
  Age: 87 Year

DRUGS (14)
  1. LYRICA [Suspect]
     Indication: NEURALGIA
     Dosage: 75 MG, UNK
     Dates: start: 20090715, end: 20090722
  2. INSULATARD [Concomitant]
     Dosage: UNK
  3. PROSCAR [Concomitant]
     Dosage: UNK
  4. SIMVASTATIN [Concomitant]
     Dosage: UNK
  5. DULCOLAX [Concomitant]
     Dosage: UNK
  6. ALVEDON [Concomitant]
     Dosage: UNK
  7. CODEINE [Concomitant]
     Dosage: UNK
  8. OXASCAND [Concomitant]
     Dosage: UNK
  9. ALLOPURINOL ^NORDIC^ [Concomitant]
     Dosage: UNK
  10. TROMBYL [Concomitant]
     Dosage: UNK
  11. STILNOCT [Concomitant]
     Dosage: UNK
  12. LAKTIPEX [Concomitant]
     Dosage: UNK
  13. NOVONORM [Concomitant]
     Dosage: UNK
  14. CITALOPRAM [Concomitant]
     Dosage: UNK

REACTIONS (2)
  - SUDDEN DEATH [None]
  - VISION BLURRED [None]
